FAERS Safety Report 9965574 (Version 2)
Quarter: 2014Q1

REPORT INFORMATION
  Report Type: Report from Study
  Country: US (occurrence: US)
  Receive Date: 20140305
  Receipt Date: 20140305
  Transmission Date: 20141002
  Serious: Yes (Hospitalization)
  Sender: FDA-Public Use
  Company Number: US-ABBVIE-13P-163-1125556-00

PATIENT
  Age: 54 Year
  Sex: Female

DRUGS (7)
  1. HUMIRA [Suspect]
     Indication: PSORIASIS
     Dates: start: 201304, end: 201307
  2. METHOTREXATE [Suspect]
  3. AMLODIPINE [Concomitant]
     Indication: HYPERTENSION
  4. PREDNISONE [Concomitant]
     Indication: PRODUCT USED FOR UNKNOWN INDICATION
  5. OXYCONTIN [Concomitant]
     Indication: PAIN
     Dosage: 5/325MG, AS NEEDED
  6. CLOBETASOL [Concomitant]
     Indication: PSORIASIS
     Dosage: FOR HANDS AND FEET AT BEDTIME
  7. FOLIC ACID [Concomitant]
     Indication: PRODUCT USED FOR UNKNOWN INDICATION
     Dosage: AT NIGHT

REACTIONS (2)
  - Pneumonia [Recovered/Resolved]
  - Joint swelling [Recovering/Resolving]
